FAERS Safety Report 4393030-X (Version None)
Quarter: 2004Q3

REPORT INFORMATION
  Report Type: 
  Country: None (occurrence: None)
  Receive Date: 20040708
  Receipt Date: 20040624
  Transmission Date: 20050211
  Serious: Yes (Other)
  Sender: FDA-Public Use
  Company Number: KR-GLAXOSMITHKLINE-B0338159A

PATIENT
  Age: 30 Year
  Sex: Female

DRUGS (1)
  1. NARAMIG [Suspect]
     Indication: HEADACHE

REACTIONS (3)
  - HYPOAESTHESIA [None]
  - PARALYSIS [None]
  - VOMITING [None]
